FAERS Safety Report 16085398 (Version 3)
Quarter: 2019Q2

REPORT INFORMATION
  Report Type: Spontaneous
  Country: US (occurrence: US)
  Receive Date: 20190318
  Receipt Date: 20190402
  Transmission Date: 20190711
  Serious: Yes (Other)
  Sender: FDA-Public Use
  Company Number: US-BEH-2019100322

PATIENT
  Age: 67 Year
  Sex: Female
  Weight: 81.63 kg

DRUGS (4)
  1. HAEGARDA [Suspect]
     Active Substance: HUMAN C1-ESTERASE INHIBITOR
     Indication: PROPHYLAXIS
     Dosage: 60/KG, EVERY 3-4 DAYS
     Route: 058
     Dates: start: 20190216, end: 20190321
  2. HAEGARDA [Suspect]
     Active Substance: HUMAN C1-ESTERASE INHIBITOR
     Indication: HEREDITARY ANGIOEDEMA WITH NORMAL C1 ESTERASE INHIBITOR
     Dosage: 1900 IU, BIW (EVERY 3-4 DAYS)
     Route: 058
     Dates: start: 20190214
  3. HAEGARDA [Suspect]
     Active Substance: HUMAN C1-ESTERASE INHIBITOR
     Indication: PROPHYLAXIS
     Dosage: 60/KG, EVERY 3-4 DAYS
     Route: 058
     Dates: start: 20190216, end: 20190321
  4. HAEGARDA [Suspect]
     Active Substance: HUMAN C1-ESTERASE INHIBITOR
     Indication: HEREDITARY ANGIOEDEMA WITH NORMAL C1 ESTERASE INHIBITOR
     Dosage: 3000 IU, BIW (EVERY 3-4 DAYS)
     Route: 058
     Dates: start: 20190214

REACTIONS (5)
  - Hereditary angioedema [Recovered/Resolved]
  - Nasopharyngitis [Unknown]
  - Pharyngeal swelling [Unknown]
  - Hereditary angioedema [Unknown]
  - Ear infection [Unknown]

NARRATIVE: CASE EVENT DATE: 20190217
